FAERS Safety Report 9180156 (Version 1)
Quarter: 2013Q1

REPORT INFORMATION
  Report Type: Spontaneous
  Country: US (occurrence: US)
  Receive Date: 20130321
  Receipt Date: 20130321
  Transmission Date: 20140127
  Serious: Yes (Other)
  Sender: FDA-Public Use
  Company Number: US-009507513-1303USA010334

PATIENT
  Age: 47 None
  Sex: Female
  Weight: 59.9 kg

DRUGS (10)
  1. RIBAVIRIN [Suspect]
     Indication: HEPATITIS C
     Dosage: 400 MG, UNK
     Route: 048
     Dates: start: 20120706
  2. RIBAVIRIN [Suspect]
     Dosage: 2AM (400 MG) AND 1 PM (200 MG) AT 600 MG PER DAY
     Route: 048
     Dates: start: 20120918
  3. RIBAVIRIN [Suspect]
     Dosage: 200 MG, BID
     Route: 048
  4. PROCRIT [Suspect]
     Indication: ANAEMIA
     Dosage: 40,000 IU WEEKLY
     Route: 058
     Dates: start: 20120823, end: 20120910
  5. PROCRIT [Suspect]
     Dosage: 40,000 IU TWICE WEEKLY
     Dates: start: 20120911, end: 20120924
  6. PROCRIT [Suspect]
     Dosage: 40,000 IU THRICE WEEKLY
     Dates: start: 20120925, end: 20120928
  7. NEUPOGEN [Suspect]
     Indication: NEUTROPENIA
     Dosage: 300 MICROGRAM, UNK
     Route: 058
     Dates: start: 20120802
  8. PEGASYS [Suspect]
     Dosage: UNK
     Dates: start: 20120706
  9. FLUOXETINE [Concomitant]
     Dosage: UNK
     Dates: start: 20120424
  10. MOBIC [Concomitant]

REACTIONS (3)
  - Aplasia pure red cell [Unknown]
  - Drug ineffective [Unknown]
  - Anaemia [Recovering/Resolving]
